FAERS Safety Report 25798811 (Version 1)
Quarter: 2025Q3

REPORT INFORMATION
  Report Type: Spontaneous
  Country: CA (occurrence: CA)
  Receive Date: 20250913
  Receipt Date: 20250913
  Transmission Date: 20251021
  Serious: Yes (Other)
  Sender: ACCORD
  Company Number: None

PATIENT
  Age: 68 Year
  Sex: Male

DRUGS (2)
  1. ROSUVASTATIN CALCIUM [Suspect]
     Active Substance: ROSUVASTATIN CALCIUM
     Indication: Product used for unknown indication
  2. CITALOPRAM [Concomitant]
     Active Substance: CITALOPRAM

REACTIONS (16)
  - Back pain [Recovering/Resolving]
  - Blood pressure increased [Recovering/Resolving]
  - Dehydration [Recovering/Resolving]
  - Dry mouth [Recovering/Resolving]
  - Dyspepsia [Recovering/Resolving]
  - Gastrooesophageal reflux disease [Recovering/Resolving]
  - Glucose urine present [Recovering/Resolving]
  - Glycosylated haemoglobin increased [Recovering/Resolving]
  - Nausea [Recovering/Resolving]
  - Pollakiuria [Recovering/Resolving]
  - Taste disorder [Recovering/Resolving]
  - Thirst [Recovering/Resolving]
  - Type 2 diabetes mellitus [Recovering/Resolving]
  - Vision blurred [Recovering/Resolving]
  - Vomiting [Recovering/Resolving]
  - Weight decreased [Recovering/Resolving]
